FAERS Safety Report 5671370-1 (Version None)
Quarter: 2008Q1

REPORT INFORMATION
  Report Type: 
  Country: None (occurrence: None)
  Receive Date: 20080312
  Receipt Date: 20080227
  Transmission Date: 20080703
  Serious: Yes (Life-Threatening)
  Sender: FDA-Public Use
  Company Number: S08-UKI-00905-01

PATIENT
  Age: 32 Year
  Sex: Female

DRUGS (4)
  1. CITALOPRAM HYDROBROMIDE [Suspect]
     Indication: DEPRESSION
     Dosage: 20 MG QD PO
     Route: 048
     Dates: start: 20060601, end: 20071221
  2. DANTROLENE SODIUM [Suspect]
     Indication: MUSCULOSKELETAL STIFFNESS
     Dosage: 50 MG TID
     Dates: start: 20060301, end: 20071221
  3. INTERFERON BETA [Suspect]
     Indication: MULTIPLE SCLEROSIS
     Dosage: 250 MCG QOD
     Dates: start: 20050801, end: 20071221
  4. TEGRETOL [Suspect]
     Indication: EPILEPSY
     Dosage: 2.5 MG BID
     Dates: start: 20070809, end: 20071221

REACTIONS (2)
  - APLASTIC ANAEMIA [None]
  - VAGINAL HAEMORRHAGE [None]
